FAERS Safety Report 4974150-5 (Version None)
Quarter: 2006Q2

REPORT INFORMATION
  Report Type: 
  Country: None (occurrence: None)
  Receive Date: 20060417
  Receipt Date: 20060404
  Transmission Date: 20061013
  Serious: Yes (Hospitalization)
  Sender: FDA-Public Use
  Company Number: US-MERCK-0604USA00594

PATIENT
  Age: 67 Year
  Sex: Male
  Weight: 107 kg

DRUGS (8)
  1. VIOXX [Suspect]
     Indication: OSTEOARTHRITIS
     Route: 048
     Dates: start: 20000922, end: 20020304
  2. VIOXX [Suspect]
     Indication: SPONDYLITIS
     Route: 048
     Dates: start: 20000922, end: 20020304
  3. VERAPAMIL MSD LP [Concomitant]
     Route: 065
  4. SYNTHROID [Concomitant]
     Indication: THYROID DISORDER
     Route: 065
  5. ALTACE [Concomitant]
     Indication: HYPERTENSION
     Route: 065
  6. LIPITOR [Concomitant]
     Indication: BLOOD CHOLESTEROL INCREASED
     Route: 065
  7. TOPROL-XL [Concomitant]
     Indication: CARDIAC DISORDER
     Route: 065
  8. AMIODARONA [Concomitant]
     Indication: CARDIAC DISORDER
     Route: 065

REACTIONS (12)
  - ADVERSE EVENT [None]
  - ARTHROPATHY [None]
  - DIALYSIS [None]
  - DRUG HYPERSENSITIVITY [None]
  - GASTRIC HAEMORRHAGE [None]
  - GASTROINTESTINAL DISORDER [None]
  - HEART RATE IRREGULAR [None]
  - ILEUS [None]
  - MYOCARDIAL INFARCTION [None]
  - NEPHROLITHIASIS [None]
  - RENAL CELL CARCINOMA STAGE UNSPECIFIED [None]
  - RENAL DISORDER [None]
